FAERS Safety Report 11111398 (Version 1)
Quarter: 2015Q2

REPORT INFORMATION
  Report Type: Spontaneous
  Country: HR (occurrence: HR)
  Receive Date: 20150513
  Receipt Date: 20150513
  Transmission Date: 20150821
  Serious: Yes (Hospitalization)
  Sender: FDA-Public Use
  Company Number: PHHY2015HR055561

PATIENT
  Age: 42 Year
  Sex: Female
  Weight: 70 kg

DRUGS (2)
  1. KLIMICIN [Suspect]
     Active Substance: CLINDAMYCIN PHOSPHATE
     Indication: ACUTE TONSILLITIS
     Dosage: 1800 MG, QD
     Route: 042
     Dates: start: 20150410, end: 20150414
  2. LUPOCET [Concomitant]
     Indication: BODY TEMPERATURE INCREASED
     Route: 048
     Dates: start: 20150410, end: 20150415

REACTIONS (3)
  - Clostridium difficile colitis [Recovered/Resolved]
  - Mucous stools [Recovered/Resolved]
  - Diarrhoea [Recovered/Resolved]

NARRATIVE: CASE EVENT DATE: 20150414
